FAERS Safety Report 21871509 (Version 1)
Quarter: 2023Q1

REPORT INFORMATION
  Report Type: Spontaneous
  Country: US (occurrence: None)
  Receive Date: 20230113
  Receipt Date: 20230113
  Transmission Date: 20230418
  Serious: Yes (Hospitalization)
  Sender: FDA-Public Use
  Company Number: None

PATIENT
  Sex: Female

DRUGS (1)
  1. CAPECITABINE [Suspect]
     Active Substance: CAPECITABINE
     Dosage: FREQUENCY : TWICE A DAY;?
     Route: 048

REACTIONS (8)
  - Facial spasm [None]
  - Dysarthria [None]
  - Muscle spasms [None]
  - Abdominal pain upper [None]
  - Diarrhoea [None]
  - Flatulence [None]
  - Abdominal distension [None]
  - Infusion related reaction [None]
